FAERS Safety Report 8825516 (Version 1)
Quarter: 2012Q4

REPORT INFORMATION
  Report Type: 
  Country: US (occurrence: US)
  Receive Date: 20121004
  Receipt Date: 20121004
  Transmission Date: 20130627
  Serious: Yes (Other)
  Sender: FDA-Public Use
  Company Number: US-JHP PHARMACEUTICALS, LLC-JHP201200482

PATIENT
  Age: 59 Year
  Sex: Male

DRUGS (7)
  1. KETALAR [Suspect]
     Indication: SEDATIVE THERAPY
     Dosage: 100 mg (1 mg/kg) over 20-30 secs)
     Route: 042
  2. MIDAZOLAM [Concomitant]
     Indication: SEDATIVE THERAPY
     Dosage: 2 mg, UNK
     Route: 042
  3. BETA AGONISTS [Concomitant]
     Indication: CHRONIC OBSTRUCTIVE PULMONARY DISEASE
     Route: 055
  4. IPRATROPIUM [Concomitant]
     Indication: CHRONIC OBSTRUCTIVE PULMONARY DISEASE
     Route: 055
  5. ALBUTEROL [Concomitant]
     Indication: CHRONIC OBSTRUCTIVE PULMONARY DISEASE
     Route: 055
  6. METHYLPREDNISOLONE [Concomitant]
     Indication: CHRONIC OBSTRUCTIVE PULMONARY DISEASE
     Dosage: 125 mg, UNK
     Route: 042
  7. MAGNESIUM [Concomitant]
     Indication: CHRONIC OBSTRUCTIVE PULMONARY DISEASE

REACTIONS (1)
  - Waxy flexibility [Recovered/Resolved]
